FAERS Safety Report 5496275-0 (Version None)
Quarter: 2007Q4

REPORT INFORMATION
  Report Type: 
  Country: None (occurrence: None)
  Receive Date: 20071025
  Receipt Date: 20070320
  Transmission Date: 20080405
  Serious: No
  Sender: FDA-Public Use
  Company Number: A0643902A

PATIENT
  Sex: Female

DRUGS (4)
  1. ADVAIR DISKUS 100/50 [Suspect]
     Route: 055
     Dates: start: 20070201
  2. NORVASK [Concomitant]
  3. DYAZIDE [Concomitant]
  4. ZYRTEC-D [Concomitant]

REACTIONS (1)
  - FEELING ABNORMAL [None]
